FAERS Safety Report 6504070-6 (Version None)
Quarter: 2009Q4

REPORT INFORMATION
  Report Type: 
  Country: None (occurrence: None)
  Receive Date: 20091215
  Receipt Date: 20091201
  Transmission Date: 20100525
  Serious: Yes (Hospitalization)
  Sender: FDA-Public Use
  Company Number: 1000010647

PATIENT
  Age: 18 Year
  Sex: Male

DRUGS (3)
  1. LEXAPRO [Suspect]
     Indication: DEPRESSION
     Dosage: (10 MG), ORAL
     Route: 048
     Dates: start: 20091110
  2. NUROFEN [Concomitant]
  3. PARACETAMOL [Concomitant]

REACTIONS (1)
  - URINARY RETENTION [None]
